FAERS Safety Report 16342425 (Version 2)
Quarter: 2019Q2

REPORT INFORMATION
  Report Type: Spontaneous
  Country: DK (occurrence: DK)
  Receive Date: 20190522
  Receipt Date: 20190612
  Transmission Date: 20190711
  Serious: Yes (Other)
  Sender: FDA-Public Use
  Company Number: DK-TEVA-2019-DK-1052426

PATIENT
  Age: 69 Year
  Sex: Female
  Weight: 65 kg

DRUGS (3)
  1. MOMETASONE ^SANDOZ^ [Concomitant]
     Active Substance: MOMETASONE
     Indication: VASOMOTOR RHINITIS
     Dosage: 2 DOSAGE FORMS DAILY; STRENGTH: 50 MICROGRAMS / DOSE. DOSAGE: 1 BREATH DAILY IN EACH NOSTRIL.
     Route: 055
     Dates: start: 20170311
  2. MONTELUKAST ^TEVA^ [Suspect]
     Active Substance: MONTELUKAST SODIUM
     Indication: ASTHMA
     Dosage: 10 MILLIGRAM DAILY;
     Route: 048
     Dates: start: 20190311, end: 20190314
  3. DESLORATIDINE [Concomitant]
     Active Substance: DESLORATADINE
     Indication: VASOMOTOR RHINITIS
     Dates: start: 20190311, end: 20190408

REACTIONS (5)
  - Nightmare [Recovered/Resolved]
  - Rectal haemorrhage [Recovered/Resolved]
  - Oral pain [Recovered/Resolved]
  - Middle insomnia [Recovered/Resolved]
  - Mouth swelling [Recovered/Resolved]

NARRATIVE: CASE EVENT DATE: 20190312
